FAERS Safety Report 18576354 (Version 1)
Quarter: 2020Q4

REPORT INFORMATION
  Report Type: Spontaneous
  Country: US (occurrence: US)
  Receive Date: 20201203
  Receipt Date: 20201203
  Transmission Date: 20210114
  Serious: Yes (Death, Other)
  Sender: FDA-Public Use
  Company Number: US-PURDUE-USA-2020-0176284

PATIENT
  Age: 45 Year
  Sex: Female

DRUGS (2)
  1. HYDROCODONE BITARTRATE AND ACETAMINOPHEN [Suspect]
     Active Substance: ACETAMINOPHEN\HYDROCODONE BITARTRATE
     Indication: JOINT INJURY
     Dosage: UNK
     Route: 048
     Dates: start: 20030822
  2. OXYCODONE HCL TABLETS (RHODES 91-490) [Suspect]
     Active Substance: OXYCODONE HYDROCHLORIDE
     Indication: JOINT INJURY
     Dosage: UNK
     Route: 048
     Dates: start: 20030822

REACTIONS (4)
  - Drug dependence [Unknown]
  - Cardiac disorder [Unknown]
  - Toxicity to various agents [Fatal]
  - Overdose [Unknown]

NARRATIVE: CASE EVENT DATE: 20131203
